FAERS Safety Report 6771297-8 (Version None)
Quarter: 2010Q2

REPORT INFORMATION
  Report Type: 
  Country: None (occurrence: None)
  Receive Date: 20100616
  Receipt Date: 20100524
  Transmission Date: 20101027
  Serious: No
  Sender: FDA-Public Use
  Company Number: US-ROXANE LABORATORIES, INC.-2010-RO-00444RO

PATIENT
  Sex: Female

DRUGS (2)
  1. BUPRENORPHINE HYDROCHLORIDE [Suspect]
     Indication: BLADDER PAIN
     Dosage: 20 MG
     Dates: start: 20100401
  2. BUPRENORPHINE HYDROCHLORIDE [Suspect]
     Dosage: 24 MG
     Dates: start: 20100420

REACTIONS (6)
  - ASTHENIA [None]
  - DRUG INEFFECTIVE [None]
  - DRUG WITHDRAWAL SYNDROME [None]
  - MALAISE [None]
  - NERVOUSNESS [None]
  - PAIN [None]
